FAERS Safety Report 6687787-2 (Version None)
Quarter: 2010Q2

REPORT INFORMATION
  Report Type: 
  Country: None (occurrence: None)
  Receive Date: 20100420
  Receipt Date: 20100406
  Transmission Date: 20101027
  Serious: Yes (Death, Hospitalization, Other)
  Sender: FDA-Public Use
  Company Number: JP-SOLVAY-00309007673

PATIENT
  Age: 22651 Day
  Sex: Male
  Weight: 54 kg

DRUGS (34)
  1. SEROTONE [Concomitant]
     Indication: PROPHYLAXIS
     Dosage: DAILY DOSE: UNKNOWN, AS USED: 10 MG, FREQUENCY: 1 TIME PER 2 WEEKS.
     Route: 042
     Dates: start: 20090623, end: 20091013
  2. DECADRON [Concomitant]
     Indication: PROPHYLAXIS
     Dosage: DAILY DOSE: UNKNOWN, AS USED: 8 MG, FREQUENCY: 1 TIME PER 2 WEEKS.
     Route: 042
     Dates: start: 20090623, end: 20091013
  3. PHYSISALZ [Concomitant]
     Indication: MEDICATION DILUTION
     Dosage: DAILY DOSE: UNKNOWN, AS USED: 100 ML, FREQUENCY: 1 TIME PER 2 WEEKS.
     Route: 042
     Dates: start: 20090623, end: 20091013
  4. PHYSISALZ [Concomitant]
     Dosage: DAILY DOSE: UNKNOWN, AS USED: 100 ML, FREQUENCY: 1 TIME PER 2 WEEKS.
     Route: 042
     Dates: start: 20090623, end: 20090915
  5. PHYSISALZ [Concomitant]
     Dosage: DAILY DOSE: 100 MILLILITRE(S), AS USED: 100 ML, FREQUENCY: ONCE
     Route: 042
     Dates: start: 20091013, end: 20091013
  6. PHYSISALZ [Concomitant]
     Dosage: DAILY DOSE: 20 MILLILITRE(S), AS USED: 20 ML, FREQUENCY: ONCE
     Route: 042
     Dates: start: 20091204, end: 20091204
  7. GLUCOSE [Concomitant]
     Indication: MEDICATION DILUTION
     Dosage: DAILY DOSE: UNKNOWN, AS USED: 100 ML, FREQUENCY: 1 TIME PER 2 WEEKS.
     Route: 042
     Dates: start: 20090623, end: 20091013
  8. BOTHDEL [Concomitant]
     Indication: NUCLEAR MAGNETIC RESONANCE IMAGING
     Dosage: DAILY DOSE: 10 MILLIGRAM(S), AS USED: 10 MG, FREQUENCY: ONCE
     Route: 048
     Dates: start: 20091001, end: 20091001
  9. BUSCOPAN [Concomitant]
     Indication: NUCLEAR MAGNETIC RESONANCE IMAGING
     Dosage: DAILY DOSE: 1 MILLILITRE(S), AS USED: 1 ML, FREQUENCY: ONCE
     Route: 030
     Dates: start: 20091001, end: 20091001
  10. IOMERON-300 [Concomitant]
     Indication: COMPUTERISED TOMOGRAM
     Dosage: DAILY DOSE: 100 MILLILITRE(S), AS USED: 100 ML, FREQUENCY: ONCE
     Route: 042
     Dates: start: 20090930, end: 20090930
  11. ISOTONIC SODIUM CHLORIDE SOLUTION [Concomitant]
     Indication: MEDICATION DILUTION
     Dosage: DAILY DOSE: 100 MILLILITRE(S), AS USED: 100 ML, FREQUENCY: ONCE
     Route: 042
     Dates: start: 20090930, end: 20090930
  12. ISOTONIC SODIUM CHLORIDE SOLUTION [Concomitant]
     Dosage: DAILY DOSE: 100 MILLILITRE(S), AS USED: 100 ML, FREQUENCY: ONCE
     Route: 042
     Dates: start: 20100128, end: 20100128
  13. SOLU-MEDROL [Concomitant]
     Indication: PROPHYLAXIS
     Dosage: DAILY DOSE: 125 MILLIGRAM(S), AS USED: 125 MG, FREQUENCY: ONCE
     Route: 042
     Dates: start: 20090930, end: 20090930
  14. SOLU-MEDROL [Concomitant]
     Dosage: DAILY DOSE: 125 MILLIGRAM(S), AS USED: 125 MG, FREQUENCY: ONCE
     Route: 042
     Dates: start: 20091204, end: 20091204
  15. SOLU-MEDROL [Concomitant]
     Dosage: DAILY DOSE: 125 MILLIGRAM(S), AS USED: 125 MG, FREQUENCY: ONCE
     Route: 042
     Dates: start: 20100128, end: 20100128
  16. BICARBON [Concomitant]
     Indication: FLUID REPLACEMENT
     Dosage: DAILY DOSE: 500 MILLILITRE(S), AS USED: 500 ML, FREQUENCY: ONCE
     Route: 042
     Dates: start: 20090930, end: 20090930
  17. TRELAN-G [Concomitant]
     Indication: GLUCOSE TOLERANCE TEST
     Dosage: DAILY DOSE: 75 GRAM(S), AS USED: 75 G, FREQUENCY: ONCE
     Route: 048
     Dates: start: 20090930, end: 20090930
  18. PFD [Concomitant]
     Indication: EXOCRINE PANCREATIC FUNCTION TEST
     Dosage: DAILY DOSE: 10 MILLILITRE(S), AS USED: 10 ML, FREQUENCY: ONCE
     Route: 048
     Dates: start: 20090929, end: 20090929
  19. NAUZELIN [Concomitant]
     Indication: NAUSEA
     Dosage: DAILY DOSE: ADEQUATE DOSE, AS USED:10 MG, FREQUENCY: AS NEEDED
     Route: 048
     Dates: start: 20090804, end: 20100119
  20. TAKEPRON [Concomitant]
     Indication: PROPHYLAXIS
     Dosage: DAILY DOSE: 15 MILLIGRAM(S)
     Route: 048
     Dates: start: 20090619, end: 20100402
  21. URSO 250 [Concomitant]
     Indication: BILIARY TRACT DISORDER
     Dosage: DAILY DOSE: 300 MILLIGRAM(S)
     Route: 048
     Dates: start: 20090616, end: 20100322
  22. CREON [Suspect]
     Indication: DYSPEPSIA
     Dosage: DAILY DOSE: 0-24 CAPSULES, FREQUENCY: 0-4 TIMES A DAY, AS USED: 2 TO 6 CAPSULES PER DAY.
     Route: 048
     Dates: start: 20090616, end: 20100322
  23. GEMZAR [Suspect]
     Indication: ADJUVANT THERAPY
     Dosage: DAILY DOSE:  1640 MG, AS USED: 1640 MG, FREQUENCY: 1 TIME PER 2 WEEKS
     Route: 042
     Dates: start: 20090623, end: 20091013
  24. ISODINE GARGLE [Concomitant]
     Indication: NASOPHARYNGITIS
     Dosage: DAILY DOSE: ADEQUATE DOSE, AS USED: ADEQUATE DOSE, FREQUENCY: AS NEEDED
     Route: 050
     Dates: start: 20090910, end: 20090910
  25. CALONAL [Concomitant]
     Indication: NASOPHARYNGITIS
     Dosage: DAILY DOSE: 200 MILLIGRAM(S), AS USED: 200 MG, FREQUENCY: ONCE
     Route: 048
     Dates: start: 20090910, end: 20090910
  26. BIOFERMIN R [Concomitant]
     Indication: NASOPHARYNGITIS
     Dosage: DAILY DOSE: 3 GRAM(S)
     Route: 048
     Dates: start: 20090910, end: 20090910
  27. CRAVIT [Concomitant]
     Indication: NASOPHARYNGITIS
     Dosage: DAILY DOSE: 250 MILLIGRAM(S), AS USED: 250 MG, FREQUENCY: ONCE
     Route: 048
     Dates: start: 20090910, end: 20090910
  28. OPTIRAY 320 [Concomitant]
     Indication: COMPUTERISED TOMOGRAM
     Dosage: DAILY DOSE: 100 MILLILITRE(S), AS USED: 100 ML, FREQUENCY: ONCE
     Route: 042
     Dates: start: 20100128, end: 20100128
  29. OMNIPAQUE 300 [Concomitant]
     Indication: COMPUTERISED TOMOGRAM
     Dosage: DAILY DOSE: 100 MILLILITRE(S), AS USED: 100 ML, FREQUENCY: ONCE
     Route: 042
     Dates: start: 20091204, end: 20091204
  30. BIOFERMIN [Concomitant]
     Indication: GASTROINTESTINAL MOTILITY DISORDER
     Dosage: DAILY DOSE: 3 GRAM(S)
     Route: 048
     Dates: start: 20091202, end: 20100104
  31. BIOFERMIN [Concomitant]
     Dosage: DAILY DOSE: 3 GRAM(S)
     Route: 048
     Dates: start: 20100205, end: 20100322
  32. LOPEMIN [Concomitant]
     Indication: POST PROCEDURAL COMPLICATION
     Dosage: DAILY DOSE: 1 MILLIGRAM(S), AS USED: 1MG, FREQUENCY: ONCE
     Route: 048
     Dates: start: 20100204, end: 20100204
  33. MUCOSTA [Concomitant]
     Indication: GASTRITIS PROPHYLAXIS
     Dosage: DAILY DOSE: 300 MILLIGRAM(S)
     Route: 048
     Dates: start: 20091211, end: 20100402
  34. LENDORMIN D [Concomitant]
     Indication: INSOMNIA
     Dosage: DAILY DOSE: ADEQUATE DOSE; AS USED: 0.125-0.25MG; FREQUENCY: AS NEEDED.
     Route: 048
     Dates: start: 20100204, end: 20100320

REACTIONS (8)
  - C-REACTIVE PROTEIN INCREASED [None]
  - INSOMNIA [None]
  - METASTASES TO LIVER [None]
  - NASOPHARYNGITIS [None]
  - NAUSEA [None]
  - PAIN [None]
  - PANCREATIC CARCINOMA RECURRENT [None]
  - PLEURAL EFFUSION [None]
